FAERS Safety Report 15500732 (Version 1)
Quarter: 2018Q4

REPORT INFORMATION
  Report Type: Report from Study
  Country: US (occurrence: US)
  Receive Date: 20181015
  Receipt Date: 20181015
  Transmission Date: 20190205
  Serious: Yes (Other)
  Sender: FDA-Public Use
  Company Number: US-UCBSA-2018045017

PATIENT

DRUGS (4)
  1. LAMICTAL [Concomitant]
     Active Substance: LAMOTRIGINE
     Indication: EPILEPSY
     Dosage: 25 MG, 2X/DAY (BID)
  2. LEVETIRACETAM. [Suspect]
     Active Substance: LEVETIRACETAM
     Indication: EPILEPSY
     Dosage: 750 MG, 2X/DAY (BID)
  3. MEDAZEPAM [Concomitant]
     Active Substance: MEDAZEPAM
     Indication: PRODUCT USED FOR UNKNOWN INDICATION
  4. TRILEPTAL [Concomitant]
     Active Substance: OXCARBAZEPINE
     Indication: EPILEPSY
     Dosage: 300 MG, 2X/DAY (BID)

REACTIONS (12)
  - Tension [Unknown]
  - Seizure [Unknown]
  - Mood swings [Unknown]
  - Syncope [Unknown]
  - Nervousness [Unknown]
  - Fear [Unknown]
  - Palpitations [Unknown]
  - Vertigo [Unknown]
  - Feeling abnormal [Unknown]
  - Tremor [Unknown]
  - Panic attack [Unknown]
  - Unevaluable event [Unknown]
